FAERS Safety Report 8823187 (Version 2)
Quarter: 2012Q4

REPORT INFORMATION
  Report Type: 
  Country: BR (occurrence: BR)
  Receive Date: 20121003
  Receipt Date: 20121026
  Transmission Date: 20130627
  Serious: Yes (Other)
  Sender: FDA-Public Use
  Company Number: BR-ROCHE-1133679

PATIENT
  Sex: Female
  Weight: 52 kg

DRUGS (7)
  1. INTERFERON ALFA-2A [Suspect]
     Indication: HEPATITIS C
     Route: 042
     Dates: start: 201104, end: 201112
  2. RIBAVIRIN [Suspect]
     Indication: HEPATITIS C
     Dosage: 2 tablets a day
     Route: 065
     Dates: start: 201104, end: 201112
  3. RIBAVIRIN [Suspect]
     Dosage: 1 tablet in one day
     Route: 065
  4. TACROLIMUS [Concomitant]
     Dosage: 1 TABLET IN THE NORNING
     Route: 065
  5. LAMIVUDINE [Concomitant]
     Dosage: 1 TABLET IN THE AFTERNOON
     Route: 065
  6. PURAN T4 [Concomitant]
     Dosage: 1 TABLET IN MORNING
     Route: 065
  7. OMEPRAZOLE [Concomitant]
     Route: 065

REACTIONS (6)
  - Syncope [Not Recovered/Not Resolved]
  - Thyroid neoplasm [Recovered/Resolved]
  - Asthenia [Recovered/Resolved]
  - Anaemia [Recovered/Resolved]
  - Hypertension [Recovered/Resolved]
  - Vertigo [Recovered/Resolved]
